FAERS Safety Report 4415996-1 (Version None)
Quarter: 2004Q3

REPORT INFORMATION
  Report Type: 
  Country: None (occurrence: None)
  Receive Date: 20040804
  Receipt Date: 20040804
  Transmission Date: 20050211
  Serious: Yes (Hospitalization)
  Sender: FDA-Public Use
  Company Number: None

PATIENT
  Age: 51 Year
  Sex: Female
  Weight: 108 kg

DRUGS (10)
  1. TAXOL [Suspect]
     Indication: BREAST CANCER
     Dosage: 80 MG/M2 IV Q WK X 16
     Route: 042
     Dates: start: 20040505, end: 20040708
  2. PRILOSEC [Concomitant]
  3. GLUCOPHAGE [Concomitant]
  4. CELEXA [Concomitant]
  5. AMBIEN [Concomitant]
  6. HYDROCHLOROTHIAZIDE [Concomitant]
  7. MOTRIN [Concomitant]
  8. ZOFRAN [Concomitant]
  9. ACTOS [Concomitant]
  10. CARBOPLATIN [Suspect]
     Dosage: AUC 6;WKS 1,5,9,13

REACTIONS (8)
  - CHILLS [None]
  - DYSURIA [None]
  - HYPERHIDROSIS [None]
  - MALAISE [None]
  - MARKEDLY REDUCED DIETARY INTAKE [None]
  - NAUSEA [None]
  - URINARY TRACT INFECTION [None]
  - VOMITING [None]
